FAERS Safety Report 7902406-2 (Version None)
Quarter: 2011Q4

REPORT INFORMATION
  Report Type: 
  Country: None (occurrence: None)
  Receive Date: 20111108
  Receipt Date: 20111104
  Transmission Date: 20120403
  Serious: Yes (Other)
  Sender: FDA-Public Use
  Company Number: US-PFIZER INC-2011019444

PATIENT
  Age: 50 Year
  Sex: Female

DRUGS (5)
  1. CELEBREX [Suspect]
     Dosage: UNK
  2. LIPITOR [Suspect]
     Indication: BLOOD CHOLESTEROL INCREASED
     Dosage: UNK
     Dates: start: 20040101
  3. ZYRTEC [Suspect]
     Dosage: UNK
  4. SYNTHROID [Concomitant]
     Indication: HYPERTHYROIDISM
     Dosage: 100 UG, 1X/DAY
     Route: 048
  5. TOPROL-XL [Concomitant]
     Indication: HYPERTENSION
     Dosage: 25 MG, 1X/DAY

REACTIONS (4)
  - URINARY INCONTINENCE [None]
  - CORONARY ARTERY DISEASE [None]
  - CYSTITIS [None]
  - RED CELL DISTRIBUTION WIDTH INCREASED [None]
